FAERS Safety Report 8041932-5 (Version None)
Quarter: 2011Q4

REPORT INFORMATION
  Report Type: 
  Country: None (occurrence: None)
  Receive Date: 20111202
  Receipt Date: 20111009
  Transmission Date: 20120403
  Serious: No
  Sender: FDA-Public Use
  Company Number: PHEH2011US03407

PATIENT
  Age: 49 Year
  Sex: Female

DRUGS (2)
  1. CLOZAPINE [Concomitant]
  2. FANAPT [Suspect]
     Dosage: 6 MG, BID, 8 MG, BID

REACTIONS (1)
  - MALAISE [None]
